FAERS Safety Report 6954773-4 (Version None)
Quarter: 2010Q3

REPORT INFORMATION
  Report Type: 
  Country: None (occurrence: None)
  Receive Date: 20100830
  Receipt Date: 20100825
  Transmission Date: 20110219
  Serious: Yes (Hospitalization)
  Sender: FDA-Public Use
  Company Number: AR-BIOGENIDEC-2010BI029637

PATIENT
  Age: 17 Year
  Sex: Female

DRUGS (2)
  1. AVONEX [Suspect]
     Indication: MULTIPLE SCLEROSIS
     Route: 030
     Dates: start: 20100809
  2. CARBAMAZEPINE [Concomitant]

REACTIONS (5)
  - ASTHENIA [None]
  - ELECTROENCEPHALOGRAM ABNORMAL [None]
  - GAZE PALSY [None]
  - MUSCLE RIGIDITY [None]
  - TREMOR [None]
